FAERS Safety Report 19418127 (Version 6)
Quarter: 2021Q4

REPORT INFORMATION
  Report Type: Spontaneous
  Country: US (occurrence: US)
  Receive Date: 20210615
  Receipt Date: 20211125
  Transmission Date: 20220303
  Serious: Yes (Hospitalization, Other)
  Sender: FDA-Public Use
  Company Number: US-GLOBAL BLOOD THERAPEUTICS INC-US-GBT-20-04114

PATIENT
  Age: 70 Year
  Sex: Male

DRUGS (10)
  1. OXBRYTA [Suspect]
     Active Substance: VOXELOTOR
     Indication: Sickle cell disease
     Route: 048
     Dates: start: 20201125, end: 20211111
  2. OXBRYTA [Suspect]
     Active Substance: VOXELOTOR
     Route: 048
     Dates: start: 20211111
  3. PREDNISOLONE [Concomitant]
     Active Substance: PREDNISOLONE
     Indication: Product used for unknown indication
     Route: 047
     Dates: start: 20201119
  4. OXYCODONE [Concomitant]
     Active Substance: OXYCODONE
     Indication: Sickle cell disease
     Dosage: 5-325 MG
     Route: 048
     Dates: start: 20201106
  5. FOLIC ACID [Concomitant]
     Active Substance: FOLIC ACID
     Indication: Product used for unknown indication
     Route: 048
     Dates: start: 20170515
  6. HYDROXYUREA [Concomitant]
     Active Substance: HYDROXYUREA
     Indication: Sickle cell disease
     Route: 048
     Dates: start: 20170202, end: 20210407
  7. ENDARI [Concomitant]
     Active Substance: GLUTAMINE
     Indication: Sickle cell disease
     Route: 048
     Dates: start: 20190424, end: 20210615
  8. PFIZER-BIONTECH COVID-19 VACCINE [Concomitant]
     Active Substance: TOZINAMERAN
     Indication: COVID-19
     Route: 030
     Dates: start: 20210610, end: 20210610
  9. PRBC TRANSFUSION [Concomitant]
     Indication: Sickle cell disease
     Dosage: 7 UNITS
     Dates: start: 20210510
  10. UMECLIDINIUM [Concomitant]
     Active Substance: UMECLIDINIUM
     Indication: Product used for unknown indication
     Dosage: 62.5-25 MCG
     Route: 055
     Dates: start: 20201215

REACTIONS (18)
  - Sickle cell anaemia with crisis [Unknown]
  - Sickle cell anaemia with crisis [Unknown]
  - Neurological rehabilitation [Unknown]
  - Eye operation [Unknown]
  - Eye operation [Unknown]
  - Unresponsive to stimuli [Unknown]
  - Septic shock [Recovered/Resolved]
  - Infection [Recovered/Resolved]
  - Sickle cell anaemia with crisis [Recovered/Resolved]
  - Lower limb fracture [Recovered/Resolved]
  - Limb operation [Recovered/Resolved]
  - Mental status changes [Recovered/Resolved]
  - Incoherent [Unknown]
  - Confusional state [Unknown]
  - Loss of control of legs [Unknown]
  - Blood creatinine increased [Unknown]
  - Sickle cell anaemia with crisis [Recovered/Resolved]
  - Off label use [Unknown]

NARRATIVE: CASE EVENT DATE: 20201101
